FAERS Safety Report 10118813 (Version 2)
Quarter: 2015Q1

REPORT INFORMATION
  Report Type: Other
  Country: None (occurrence: US)
  Receive Date: 20140426
  Receipt Date: 20150130
  Transmission Date: 20150720
  Serious: Yes (Hospitalization, Other)
  Sender: FDA-Public Use
  Company Number: US-GSKPPD-2014GSK020702

PATIENT
  Age: 59 Year
  Sex: Female

DRUGS (7)
  1. BENICAR [Concomitant]
     Active Substance: OLMESARTAN MEDOXOMIL
     Route: 048
  2. MAVIK [Concomitant]
     Active Substance: TRANDOLAPRIL
     Route: 048
  3. AVANDIA [Suspect]
     Active Substance: ROSIGLITAZONE MALEATE
     Indication: DIABETES MELLITUS
     Dosage: DATES OF AVANDIA USE COULD NOT BE CONFIRMED IN RECORDS REVIEWED.
     Route: 048
  4. NORVASC [Concomitant]
     Active Substance: AMLODIPINE BESYLATE
     Route: 048
  5. WARFARIN [Concomitant]
     Active Substance: WARFARIN
     Route: 048
  6. ASPIRIN. [Concomitant]
     Active Substance: ASPIRIN
     Route: 048
  7. CRESTOR [Concomitant]
     Active Substance: ROSUVASTATIN CALCIUM
     Route: 048

REACTIONS (2)
  - Cerebrovascular accident [Unknown]
  - Coronary artery disease [Recovered/Resolved]

NARRATIVE: CASE EVENT DATE: 20041206
